FAERS Safety Report 4440921-7 (Version None)
Quarter: 2004Q3

REPORT INFORMATION
  Report Type: 
  Country: None (occurrence: None)
  Receive Date: 20040728
  Receipt Date: 20040513
  Transmission Date: 20050211
  Serious: No
  Sender: FDA-Public Use
  Company Number: USA040465701

PATIENT
  Age: 12 Year
  Sex: Male
  Weight: 30 kg

DRUGS (3)
  1. STRATTERA [Suspect]
     Indication: ATTENTION DEFICIT/HYPERACTIVITY DISORDER
     Dosage: 36 MG/1 IN THE MORNING
     Dates: start: 20040401
  2. ADDERALL 10 [Concomitant]
  3. WELLBUTRIN [Concomitant]

REACTIONS (5)
  - ABNORMAL BEHAVIOUR [None]
  - AGGRESSION [None]
  - HYPERPHAGIA [None]
  - NERVOUSNESS [None]
  - WEIGHT INCREASED [None]
